FAERS Safety Report 10174926 (Version 2)
Quarter: 2014Q2

REPORT INFORMATION
  Report Type: Spontaneous
  Country: GR (occurrence: GR)
  Receive Date: 20140515
  Receipt Date: 20140605
  Transmission Date: 20141212
  Serious: Yes (Other)
  Sender: FDA-Public Use
  Company Number: GR-MYLANLABS-2014S1010539

PATIENT
  Age: 98 Year
  Sex: Male

DRUGS (8)
  1. SOTALOL [Suspect]
     Indication: ARRHYTHMIA
     Route: 048
     Dates: end: 20140515
  2. ISOPTO-CARPINE [Concomitant]
     Indication: GLAUCOMA
     Dosage: LEFT EYE
     Route: 031
  3. ALPHAGAN [Concomitant]
     Indication: GLAUCOMA
     Dosage: LEFT EYE
     Route: 031
  4. XALATAN [Concomitant]
     Indication: GLAUCOMA
     Dosage: BOTH EYES
     Route: 031
  5. COSOPT [Concomitant]
     Indication: GLAUCOMA
     Dosage: BOTH EYES
     Route: 031
  6. DUODART [Concomitant]
     Indication: BENIGN PROSTATIC HYPERPLASIA
     Route: 048
  7. ACETAZOLAMIDE [Concomitant]
     Indication: GLAUCOMA
     Route: 048
  8. SALOSPIR [Concomitant]
     Indication: THROMBOSIS PROPHYLAXIS
     Dosage: EVERY NOON
     Route: 048

REACTIONS (2)
  - Visual impairment [Not Recovered/Not Resolved]
  - Hypotension [Not Recovered/Not Resolved]
